FAERS Safety Report 6963784-4 (Version None)
Quarter: 2010Q3

REPORT INFORMATION
  Report Type: 
  Country: None (occurrence: None)
  Receive Date: 20100902
  Receipt Date: 20100831
  Transmission Date: 20110219
  Serious: Yes (Other)
  Sender: FDA-Public Use
  Company Number: US-ALLERGAN-1011031US

PATIENT
  Age: 17 Year
  Sex: Female

DRUGS (4)
  1. BOTOX [Suspect]
     Indication: MUSCLE SPASTICITY
     Dosage: 90 UNITS, SINGLE
     Route: 030
     Dates: start: 20100701, end: 20100701
  2. BACLOFEN [Concomitant]
  3. VALIUM [Concomitant]
  4. TIZANIDINE HCL [Concomitant]

REACTIONS (1)
  - GRAND MAL CONVULSION [None]
